FAERS Safety Report 6298317-1 (Version None)
Quarter: 2009Q3

REPORT INFORMATION
  Report Type: 
  Country: None (occurrence: None)
  Receive Date: 20090805
  Receipt Date: 20090724
  Transmission Date: 20100115
  Serious: Yes (Hospitalization)
  Sender: FDA-Public Use
  Company Number: PHHY2009FR30941

PATIENT
  Sex: Male
  Weight: 4.1 kg

DRUGS (1)
  1. LEPONEX [Suspect]
     Dosage: MATERNAL DOSE: 250 MG/DAY
     Route: 064

REACTIONS (6)
  - DRUG EXPOSURE DURING PREGNANCY [None]
  - HYPOTONIA [None]
  - INFANTILE APNOEIC ATTACK [None]
  - MACROSOMIA [None]
  - MATERNAL DRUGS AFFECTING FOETUS [None]
  - SOMNOLENCE [None]
